FAERS Safety Report 14826295 (Version 3)
Quarter: 2021Q4

REPORT INFORMATION
  Report Type: Spontaneous
  Country: US (occurrence: US)
  Receive Date: 20180430
  Receipt Date: 20211222
  Transmission Date: 20220304
  Serious: No
  Sender: FDA-Public Use
  Company Number: US-VERTEX PHARMACEUTICALS-2018-002827

PATIENT
  Age: 10 Year
  Sex: Male

DRUGS (9)
  1. ORKAMBI [Suspect]
     Active Substance: IVACAFTOR\LUMACAFTOR
     Indication: Cystic fibrosis
     Dosage: 2 TABLET (200/125 EACH), BID
     Route: 048
     Dates: start: 201710, end: 20180419
  2. ALBUTEROL [Concomitant]
     Active Substance: ALBUTEROL
  3. SODIUM CHLORIDE [Concomitant]
     Active Substance: SODIUM CHLORIDE
  4. PULMOZYME [Concomitant]
     Active Substance: DORNASE ALFA
  5. TOBRAMYCIN [Concomitant]
     Active Substance: TOBRAMYCIN
  6. CAYSTON [Concomitant]
     Active Substance: AZTREONAM
  7. AZITHROMYCIN [Concomitant]
     Active Substance: AZITHROMYCIN
  8. CREON [Concomitant]
     Active Substance: PANCRELIPASE AMYLASE\PANCRELIPASE LIPASE\PANCRELIPASE PROTEASE
  9. MIRALAX [Concomitant]
     Active Substance: POLYETHYLENE GLYCOL 3350

REACTIONS (1)
  - Migraine [Recovered/Resolved]

NARRATIVE: CASE EVENT DATE: 20171001
